FAERS Safety Report 15580708 (Version 1)
Quarter: 2018Q4

REPORT INFORMATION
  Report Type: Spontaneous
  Country: US (occurrence: US)
  Receive Date: 20181103
  Receipt Date: 20181103
  Transmission Date: 20190205
  Serious: Yes (Disabling)
  Sender: FDA-Public Use
  Company Number: None

PATIENT
  Age: 30 Year
  Sex: Female
  Weight: 57.15 kg

DRUGS (4)
  1. VICKS VAPOCOOL [Suspect]
     Active Substance: MENTHOL
     Indication: COUGH
     Dosage: ?          QUANTITY:1 DROP(S);?
     Route: 048
     Dates: start: 20181030
  2. FLUTICISONE [Concomitant]
  3. MIRENA [Concomitant]
     Active Substance: LEVONORGESTREL
  4. KETOCONAZOLE. [Concomitant]
     Active Substance: KETOCONAZOLE

REACTIONS (3)
  - Tongue erythema [None]
  - Glossodynia [None]
  - Glossitis [None]

NARRATIVE: CASE EVENT DATE: 20181102
